FAERS Safety Report 7724509-8 (Version None)
Quarter: 2011Q3

REPORT INFORMATION
  Report Type: 
  Country: None (occurrence: None)
  Receive Date: 20110901
  Receipt Date: 20110722
  Transmission Date: 20111222
  Serious: Yes (Hospitalization)
  Sender: FDA-Public Use
  Company Number: JP-GLAXOSMITHKLINE-B0734986A

PATIENT
  Sex: Female

DRUGS (5)
  1. METHYCOBAL [Concomitant]
     Route: 065
  2. VALTREX [Suspect]
     Indication: HERPES ZOSTER
     Dosage: 1500MG PER DAY
     Route: 048
     Dates: start: 20110704, end: 20110706
  3. LOXONIN [Concomitant]
     Route: 065
  4. DIALYSIS [Concomitant]
  5. MUCOSTA [Concomitant]
     Route: 048

REACTIONS (3)
  - DISORIENTATION [None]
  - SOMNOLENCE [None]
  - ALTERED STATE OF CONSCIOUSNESS [None]
